FAERS Safety Report 13278807 (Version 12)
Quarter: 2018Q2

REPORT INFORMATION
  Report Type: Spontaneous
  Country: US (occurrence: US)
  Receive Date: 20170228
  Receipt Date: 20180509
  Transmission Date: 20180711
  Serious: Yes (Hospitalization)
  Sender: FDA-Public Use
  Company Number: US-ACTELION-A-NJ2017-149690

PATIENT
  Age: 67 Year
  Sex: Female
  Weight: 58.5 kg

DRUGS (14)
  1. UPTRAVI [Suspect]
     Active Substance: SELEXIPAG
     Dosage: 600 MCG, BID
     Route: 048
  2. UPTRAVI [Suspect]
     Active Substance: SELEXIPAG
     Dosage: 200 MCG, BID
     Route: 048
     Dates: start: 20170202
  3. COUMADIN [Concomitant]
     Active Substance: WARFARIN SODIUM
  4. UPTRAVI [Suspect]
     Active Substance: SELEXIPAG
     Dosage: 1200 MCG, BID
     Route: 048
  5. REMODULIN [Suspect]
     Active Substance: TREPROSTINIL
     Indication: PRODUCT USED FOR UNKNOWN INDICATION
     Route: 065
  6. UPTRAVI [Suspect]
     Active Substance: SELEXIPAG
     Indication: PULMONARY ARTERIAL HYPERTENSION
     Dosage: 1600 MCG, BID
     Route: 048
  7. UPTRAVI [Suspect]
     Active Substance: SELEXIPAG
     Dosage: 1000 MCG, BID
     Route: 048
  8. UPTRAVI [Suspect]
     Active Substance: SELEXIPAG
     Dosage: 1400 MCG, IN AM
     Route: 048
  9. SILDENAFIL. [Concomitant]
     Active Substance: SILDENAFIL
  10. UPTRAVI [Suspect]
     Active Substance: SELEXIPAG
     Dosage: 1600 MCG, QD IN PM
     Route: 048
  11. DILTIAZEM. [Concomitant]
     Active Substance: DILTIAZEM
  12. UPTRAVI [Suspect]
     Active Substance: SELEXIPAG
     Dosage: 800 MCG, BID
     Route: 048
  13. UPTRAVI [Suspect]
     Active Substance: SELEXIPAG
     Dosage: 1600 MCG, BID
     Route: 048
  14. LETAIRIS [Concomitant]
     Active Substance: AMBRISENTAN

REACTIONS (20)
  - Ventricular septal defect [Unknown]
  - Syncope [Unknown]
  - Nausea [Unknown]
  - Flushing [Unknown]
  - Condition aggravated [Unknown]
  - Malaise [Unknown]
  - Headache [Unknown]
  - Dyspnoea [Unknown]
  - Cerebral haematoma [Unknown]
  - Dizziness [Unknown]
  - Dizziness postural [Unknown]
  - Diarrhoea [Unknown]
  - Oxygen saturation decreased [Unknown]
  - Loss of consciousness [Unknown]
  - Feeling abnormal [Unknown]
  - Therapy non-responder [Unknown]
  - Cough [Unknown]
  - Fatigue [Unknown]
  - Presyncope [Unknown]
  - Chest discomfort [Unknown]

NARRATIVE: CASE EVENT DATE: 20170204
